FAERS Safety Report 10508476 (Version 2)
Quarter: 2015Q1

REPORT INFORMATION
  Report Type: Spontaneous
  Country: US (occurrence: US)
  Receive Date: 20141009
  Receipt Date: 20150106
  Transmission Date: 20150720
  Serious: No
  Sender: FDA-Public Use
  Company Number: US-SHIRE-US201406675

PATIENT
  Sex: Male
  Weight: 31.75 kg

DRUGS (2)
  1. INTUNIV [Suspect]
     Active Substance: GUANFACINE HYDROCHLORIDE
     Indication: ATTENTION DEFICIT/HYPERACTIVITY DISORDER
     Dosage: 2 MG, 1X/DAY:QD
     Route: 048
     Dates: start: 2009
  2. INTUNIV [Suspect]
     Active Substance: GUANFACINE HYDROCHLORIDE
     Dosage: 3 MG, 1X/DAY:QD
     Route: 048

REACTIONS (7)
  - Drug ineffective [Not Recovered/Not Resolved]
  - Negativism [Not Recovered/Not Resolved]
  - Adverse drug reaction [Not Recovered/Not Resolved]
  - Constipation [Not Recovered/Not Resolved]
  - Disturbance in attention [Unknown]
  - Fatigue [Not Recovered/Not Resolved]
  - Drug dose titration not performed [Recovered/Resolved]

NARRATIVE: CASE EVENT DATE: 2009
